FAERS Safety Report 6164444-2 (Version None)
Quarter: 2009Q2

REPORT INFORMATION
  Report Type: 
  Country: None (occurrence: None)
  Receive Date: 20090421
  Receipt Date: 20090409
  Transmission Date: 20091009
  Serious: Yes (Other)
  Sender: FDA-Public Use
  Company Number: 2009AP001467

PATIENT
  Age: 68 Year
  Sex: Female

DRUGS (1)
  1. ALENDRONATE SODIUM [Suspect]
     Indication: OSTEOPOROSIS
     Dosage: 70 MG; QW; PO
     Route: 048
     Dates: start: 20090322, end: 20090408

REACTIONS (11)
  - APHASIA [None]
  - APTYALISM [None]
  - COUGH [None]
  - DRY MOUTH [None]
  - DRY THROAT [None]
  - DYSARTHRIA [None]
  - DYSGEUSIA [None]
  - DYSPNOEA [None]
  - GLOSSITIS [None]
  - PHARYNGEAL OEDEMA [None]
  - THROAT TIGHTNESS [None]
